FAERS Safety Report 16623850 (Version 1)
Quarter: 2019Q3

REPORT INFORMATION
  Report Type: Spontaneous
  Country: US (occurrence: US)
  Receive Date: 20190724
  Receipt Date: 20190724
  Transmission Date: 20191004
  Serious: Yes (Other)
  Sender: FDA-Public Use
  Company Number: US-ROCHE-2357441

PATIENT
  Sex: Female
  Weight: 107 kg

DRUGS (1)
  1. OCREVUS [Suspect]
     Active Substance: OCRELIZUMAB
     Indication: MULTIPLE SCLEROSIS
     Dosage: EACH INFUSION SEPARATED BY 2 WEEKS?DATE OF TREATMENT: 14/MAR/2018
     Route: 065
     Dates: start: 20180228, end: 20180314

REACTIONS (1)
  - Nuclear magnetic resonance imaging abnormal [Unknown]
